FAERS Safety Report 20034568 (Version 1)
Quarter: 2021Q4

REPORT INFORMATION
  Report Type: Spontaneous
  Country: DE (occurrence: DE)
  Receive Date: 20211104
  Receipt Date: 20211104
  Transmission Date: 20220303
  Serious: Yes (Hospitalization, Other)
  Sender: FDA-Public Use
  Company Number: DE-ADRED-06915-01

PATIENT
  Age: 68 Year
  Sex: Male

DRUGS (9)
  1. CISPLATIN [Suspect]
     Active Substance: CISPLATIN
     Indication: Product used for unknown indication
     Dosage: UNK, NACH SCHEMA
  2. GEMCITABINE [Suspect]
     Active Substance: GEMCITABINE
     Indication: Product used for unknown indication
     Dosage: UNK, NACH SCHEMA
  3. AMLODIPIN                          /00972401/ [Concomitant]
     Dosage: 5 MG, 1-0-1-0
  4. RAMIPRIL [Concomitant]
     Active Substance: RAMIPRIL
     Dosage: 5 MILLIGRAM, QD, 1-0-0-0
  5. APIXABAN [Concomitant]
     Active Substance: APIXABAN
     Dosage: 5 MILLIGRAM, 1-0-1-0
  6. CALCIUM CARBONATE\VITAMIN D [Concomitant]
     Active Substance: CALCIUM CARBONATE\VITAMIN D
     Dosage: 1 DOSAGE FORM, QD, 1-0-0-0
  7. PANTOPRAZOL                        /01263201/ [Concomitant]
     Dosage: 20 MILLIGRAM, QD, 1-0-0-0
  8. TAMSULOSIN [Concomitant]
     Active Substance: TAMSULOSIN
     Dosage: 0.4 MILLIGRAM, QD, 0-0-1-0
  9. PREGABALIN [Concomitant]
     Active Substance: PREGABALIN
     Dosage: 75 MILLIGRAM, 1-0-1-0

REACTIONS (5)
  - Chills [Unknown]
  - General physical health deterioration [Unknown]
  - Pollakiuria [Unknown]
  - Pyrexia [Unknown]
  - Urogenital haemorrhage [Unknown]
